FAERS Safety Report 17962914 (Version 1)
Quarter: 2020Q2

REPORT INFORMATION
  Report Type: Report from Study
  Country: US (occurrence: US)
  Receive Date: 20200630
  Receipt Date: 20200630
  Transmission Date: 20200714
  Serious: Yes (Other)
  Sender: FDA-Public Use
  Company Number: US-BIOVITRUM-2020US0858

PATIENT
  Sex: Female

DRUGS (1)
  1. KINERET [Suspect]
     Active Substance: ANAKINRA
     Indication: CRYOPYRIN ASSOCIATED PERIODIC SYNDROME
     Route: 058
     Dates: start: 20200130, end: 20200212

REACTIONS (6)
  - Cellulitis [Unknown]
  - Injection site erythema [Unknown]
  - Injection site warmth [Unknown]
  - Off label use [Unknown]
  - Injection site pruritus [Unknown]
  - Injection site inflammation [Unknown]
